FAERS Safety Report 7465032-8 (Version None)
Quarter: 2011Q2

REPORT INFORMATION
  Report Type: 
  Country: None (occurrence: None)
  Receive Date: 20110509
  Receipt Date: 20110412
  Transmission Date: 20111010
  Serious: Yes (Hospitalization)
  Sender: FDA-Public Use
  Company Number: US-BAYER-201025834NA

PATIENT
  Age: 25 Year
  Sex: Female

DRUGS (9)
  1. PHENERGAN HCL [Concomitant]
  2. MS CONTIN [Concomitant]
  3. FLOVENT [Concomitant]
  4. ALBUTEROL [Concomitant]
  5. CELEXA [Concomitant]
  6. LORTAB [Concomitant]
  7. PULMICORT [Concomitant]
  8. YAZ [Suspect]
     Indication: PRODUCT USED FOR UNKNOWN INDICATION
     Route: 048
  9. LORAZEPAM [Concomitant]

REACTIONS (1)
  - PULMONARY EMBOLISM [None]
